FAERS Safety Report 8978727 (Version 1)
Quarter: 2012Q4

REPORT INFORMATION
  Report Type: 
  Country: US (occurrence: US)
  Receive Date: 20121221
  Receipt Date: 20121221
  Transmission Date: 20130627
  Serious: No
  Sender: FDA-Public Use
  Company Number: US-BIOGENIDEC-2012BI062353

PATIENT
  Sex: Female

DRUGS (2)
  1. TYSABRI [Suspect]
     Indication: MULTIPLE SCLEROSIS
     Route: 042
     Dates: start: 20080317, end: 20100811
  2. TYSABRI [Suspect]
     Indication: MULTIPLE SCLEROSIS
     Route: 042
     Dates: start: 20110831

REACTIONS (9)
  - Dyslexia [Unknown]
  - Disorientation [Not Recovered/Not Resolved]
  - Psychomotor hyperactivity [Not Recovered/Not Resolved]
  - Fall [Recovered/Resolved]
  - Blister [Recovered/Resolved]
  - Balance disorder [Not Recovered/Not Resolved]
  - Memory impairment [Unknown]
  - Head injury [Recovered/Resolved]
  - Dizziness [Recovered/Resolved]
